FAERS Safety Report 23243217 (Version 4)
Quarter: 2025Q3

REPORT INFORMATION
  Report Type: Report from Study
  Country: US (occurrence: US)
  Receive Date: 20231130
  Receipt Date: 20250816
  Transmission Date: 20251020
  Serious: No
  Sender: ALEXION PHARMACEUTICALS
  Company Number: US-AstraZeneca-CH-00515891A

PATIENT
  Sex: Male

DRUGS (1)
  1. SOLIRIS [Suspect]
     Active Substance: ECULIZUMAB
     Indication: Myasthenia gravis
     Route: 065

REACTIONS (8)
  - Blood urine present [Unknown]
  - Pain [Not Recovered/Not Resolved]
  - Back pain [Unknown]
  - Eye swelling [Unknown]
  - Pyrexia [Unknown]
  - Rash [Unknown]
  - Quality of life decreased [Unknown]
  - Crying [Unknown]
